FAERS Safety Report 5526138-3 (Version None)
Quarter: 2007Q4

REPORT INFORMATION
  Report Type: 
  Country: None (occurrence: None)
  Receive Date: 20071120
  Receipt Date: 20071108
  Transmission Date: 20080405
  Serious: Yes (Other)
  Sender: FDA-Public Use
  Company Number: GXKR2007CH09630

PATIENT
  Age: 76 Year
  Sex: Female

DRUGS (7)
  1. SIMVASTATIN [Suspect]
     Dosage: 20 MG, QD, ORAL
     Route: 048
  2. MARCUMAR [Suspect]
     Indication: ATRIAL FIBRILLATION
     Dosage: ORAL
     Route: 048
  3. XENALON (SPIRONOLACTONE) [Concomitant]
  4. CALCIMAGON-D3 (CALCIUM CARBONATE, COLECALCIFEROL) [Concomitant]
  5. PULMICORT [Concomitant]
  6. OMED (OMEPRAZOLE) CAPSULE, 40 MG [Concomitant]
  7. VERAPAM (VERAPAMIL HYDROCHLORIDE) [Concomitant]

REACTIONS (4)
  - DIARRHOEA HAEMORRHAGIC [None]
  - DRUG INTERACTION [None]
  - GASTROINTESTINAL HAEMORRHAGE [None]
  - NAUSEA [None]
